FAERS Safety Report 10252380 (Version 1)
Quarter: 2014Q2

REPORT INFORMATION
  Report Type: Spontaneous
  Country: FR (occurrence: None)
  Receive Date: 20140619
  Receipt Date: 20140619
  Transmission Date: 20141212
  Serious: Yes (Life-Threatening, Hospitalization, Other)
  Sender: FDA-Public Use
  Company Number: 2014000183

PATIENT
  Age: 49 Year
  Sex: Male

DRUGS (6)
  1. ACEON [Suspect]
     Indication: PRODUCT USED FOR UNKNOWN INDICATION
     Route: 048
     Dates: end: 20140514
  2. SEROPLEX [Suspect]
     Indication: PRODUCT USED FOR UNKNOWN INDICATION
     Route: 048
     Dates: end: 20140514
  3. SIMVASTATIN(SIMVASTATIN) [Suspect]
     Indication: PRODUCT USED FOR UNKNOWN INDICATION
     Dates: start: 20140514
  4. DIAZEPAM [Suspect]
     Indication: PRODUCT USED FOR UNKNOWN INDICATION
     Route: 048
     Dates: end: 20140514
  5. ZOPICLONE [Suspect]
     Dates: start: 20140515, end: 20140515
  6. ZOLPIDEM [Suspect]
     Route: 048
     Dates: end: 20140515

REACTIONS (5)
  - Coma [None]
  - Vasoplegia syndrome [None]
  - Bradycardia [None]
  - Intentional overdose [None]
  - Renal failure acute [None]
